FAERS Safety Report 7917338-3 (Version None)
Quarter: 2011Q4

REPORT INFORMATION
  Report Type: 
  Country: None (occurrence: None)
  Receive Date: 20111116
  Receipt Date: 20111109
  Transmission Date: 20120403
  Serious: Yes (Other)
  Sender: FDA-Public Use
  Company Number: PHHY2011CA098217

PATIENT
  Sex: Female

DRUGS (15)
  1. TOBI [Suspect]
     Indication: RESPIRATORY TRACT INFECTION
  2. ALVESCO [Concomitant]
  3. PULMOZYME [Concomitant]
  4. ULTRASE MT20 [Concomitant]
  5. OXEZE [Concomitant]
  6. NACL [Concomitant]
  7. NORVASC [Concomitant]
  8. ZITHROMAX [Concomitant]
  9. VITAMIN E [Concomitant]
     Dosage: 400 IU, QD
  10. ZINC [Concomitant]
  11. TOBI [Suspect]
     Indication: CYSTIC FIBROSIS
     Dosage: 116 MG, BID
     Dates: start: 20110916, end: 20110916
  12. TOBI [Suspect]
     Indication: PSEUDOMONAS INFECTION
  13. VITAMIN K TAB [Concomitant]
  14. CENTRUM [Concomitant]
  15. VITAMIN D [Concomitant]

REACTIONS (1)
  - COUGH [None]
